FAERS Safety Report 8472194-2 (Version None)
Quarter: 2012Q2

REPORT INFORMATION
  Report Type: 
  Country: None (occurrence: None)
  Receive Date: 20120627
  Receipt Date: 20120622
  Transmission Date: 20120825
  Serious: Yes (Hospitalization, Disabling, Other)
  Sender: FDA-Public Use
  Company Number: US-MERCK-1203USA03308

PATIENT
  Age: 67 Year
  Sex: Female
  Weight: 109 kg

DRUGS (5)
  1. FOSAMAX PLUS D [Suspect]
     Indication: OSTEOPOROSIS
     Route: 048
  2. FOSAMAX PLUS D [Suspect]
     Indication: OSTEOPENIA
     Route: 048
  3. FOSAMAX [Suspect]
     Indication: OSTEOPENIA
     Route: 048
     Dates: start: 19970101, end: 20070101
  4. CALCIUM (UNSPECIFIED) [Concomitant]
     Route: 048
  5. FOSAMAX [Suspect]
     Indication: OSTEOPOROSIS
     Route: 048
     Dates: start: 19970101, end: 20070101

REACTIONS (61)
  - FEMUR FRACTURE [None]
  - POST PROCEDURAL HAEMORRHAGE [None]
  - OSTEOPOROSIS [None]
  - GASTRITIS [None]
  - MICTURITION URGENCY [None]
  - INFECTION [None]
  - DERMATITIS [None]
  - ADVERSE EVENT [None]
  - EXOSTOSIS [None]
  - WOUND DEHISCENCE [None]
  - TOOTH DISORDER [None]
  - SYNOVIAL DISORDER [None]
  - SKIN DISORDER [None]
  - PAIN [None]
  - DIABETES MELLITUS [None]
  - ASTHMA [None]
  - BONE DENSITY DECREASED [None]
  - ROTATOR CUFF SYNDROME [None]
  - ADVERSE DRUG REACTION [None]
  - BUNDLE BRANCH BLOCK RIGHT [None]
  - DYSPEPSIA [None]
  - NOCTURIA [None]
  - BACK PAIN [None]
  - ANAEMIA POSTOPERATIVE [None]
  - DEVICE FAILURE [None]
  - HYPOACUSIS [None]
  - SWELLING [None]
  - PAIN IN EXTREMITY [None]
  - LYMPHOEDEMA [None]
  - CATARACT [None]
  - IRON DEFICIENCY ANAEMIA [None]
  - BREAST DISORDER [None]
  - SQUAMOUS CELL CARCINOMA [None]
  - IMPAIRED HEALING [None]
  - WEIGHT INCREASED [None]
  - SEROMA [None]
  - ELECTROCARDIOGRAM ABNORMAL [None]
  - DYSPNOEA EXERTIONAL [None]
  - GRAVITATIONAL OEDEMA [None]
  - CELLULITIS [None]
  - OSTEOARTHRITIS [None]
  - DEVICE DIFFICULT TO USE [None]
  - FOOT DEFORMITY [None]
  - STAPHYLOCOCCAL INFECTION [None]
  - CLOSTRIDIAL INFECTION [None]
  - HYPOTHYROIDISM [None]
  - GAIT DISTURBANCE [None]
  - NERVOUSNESS [None]
  - ECZEMA [None]
  - CORONARY ARTERY DISEASE [None]
  - ANAEMIA [None]
  - NEOPLASM MALIGNANT [None]
  - FRACTURE MALUNION [None]
  - WOUND HAEMATOMA [None]
  - MUSCULAR WEAKNESS [None]
  - VISUAL ACUITY REDUCED [None]
  - DEPRESSION [None]
  - BLOOD DISORDER [None]
  - MULTIPLE FRACTURES [None]
  - FALL [None]
  - STRESS URINARY INCONTINENCE [None]
